FAERS Safety Report 9187391 (Version 2)
Quarter: 2012Q4

REPORT INFORMATION
  Report Type: 
  Country: US (occurrence: US)
  Receive Date: 20121116
  Receipt Date: 20121213
  Transmission Date: 20130627
  Serious: Yes (Other)
  Sender: FDA-Public Use
  Company Number: US-RB-046661-12

PATIENT
  Age: 0 None
  Sex: Female

DRUGS (6)
  1. SUBUTEX [Suspect]
     Indication: DRUG DEPENDENCE
     Route: 064
  2. GENERIC BUPRENORPHINE [Suspect]
     Indication: PRODUCT USED FOR UNKNOWN INDICATION
     Dosage: Unknown dosing details
     Route: 064
  3. GENERIC BUPRENORPHINE [Suspect]
     Dosage: Dose details not provided
     Route: 063
     Dates: start: 2012
  4. PRENATAL VITAMINS [Suspect]
     Indication: PREGNANCY
     Dosage: Dosing details not provided
     Route: 064
  5. CLONAZEPAM [Suspect]
     Indication: ANXIETY
     Route: 064
  6. NICOTINE PATCH [Suspect]
     Indication: TOBACCO USER
     Route: 064

REACTIONS (4)
  - Premature baby [Recovered/Resolved]
  - Drug withdrawal syndrome neonatal [Recovered/Resolved]
  - Foetal exposure during pregnancy [Recovered/Resolved]
  - Exposure during breast feeding [Not Recovered/Not Resolved]
